FAERS Safety Report 18718836 (Version 1)
Quarter: 2021Q1

REPORT INFORMATION
  Report Type: Spontaneous
  Country: US (occurrence: US)
  Receive Date: 20210108
  Receipt Date: 20210108
  Transmission Date: 20210419
  Serious: No
  Sender: FDA-Public Use
  Company Number: US-PFIZER INC-2021003393

PATIENT
  Age: 35 Year
  Sex: Female
  Weight: 68.03 kg

DRUGS (2)
  1. IBRANCE [Suspect]
     Active Substance: PALBOCICLIB
     Indication: METASTASES TO BONE
  2. IBRANCE [Suspect]
     Active Substance: PALBOCICLIB
     Indication: BREAST CANCER FEMALE
     Dosage: 125 MG,CYCLIC(ONE CYCLE OF IBRANCE, WAS OFF FOR 7 DAYS. SHE TOOK 1 DAY OF NEXT CYCLE/DAILY,21 DAYS,7
     Route: 048
     Dates: start: 20201118, end: 20201228

REACTIONS (5)
  - Tumour marker increased [Unknown]
  - Increased tendency to bruise [Unknown]
  - Neutrophil count decreased [Unknown]
  - White blood cell count decreased [Unknown]
  - Epistaxis [Unknown]
